FAERS Safety Report 18978745 (Version 1)
Quarter: 2021Q1

REPORT INFORMATION
  Report Type: Spontaneous
  Country: US (occurrence: US)
  Receive Date: 20210308
  Receipt Date: 20210308
  Transmission Date: 20210420
  Serious: No
  Sender: FDA-Public Use
  Company Number: US-SA-2021SA076653

PATIENT
  Sex: Female

DRUGS (1)
  1. DUPIXENT [Suspect]
     Active Substance: DUPILUMAB
     Indication: DERMATITIS
     Dosage: 200 MG, QOW

REACTIONS (5)
  - Product dose omission in error [Unknown]
  - Peripheral swelling [Recovering/Resolving]
  - Eczema [Unknown]
  - Furuncle [Recovering/Resolving]
  - Pain in extremity [Recovering/Resolving]
